FAERS Safety Report 9827168 (Version 1)
Quarter: 2014Q1

REPORT INFORMATION
  Report Type: Spontaneous
  Country: US (occurrence: US)
  Receive Date: 20140117
  Receipt Date: 20140117
  Transmission Date: 20141002
  Serious: No
  Sender: FDA-Public Use
  Company Number: US-GLAXOSMITHKLINE-A1042977A

PATIENT
  Age: 57 Year
  Sex: Male

DRUGS (4)
  1. PROMACTA [Suspect]
     Indication: HEPATITIS C
     Dosage: 50MG PER DAY
     Route: 048
     Dates: start: 20130718
  2. PEG-INTRON [Concomitant]
  3. RIBAVIRIN [Concomitant]
  4. VICTRELIS [Concomitant]

REACTIONS (5)
  - Fatigue [Unknown]
  - Depression [Unknown]
  - Amnesia [Unknown]
  - Skin exfoliation [Unknown]
  - Erythema [Unknown]
